FAERS Safety Report 8621745-3 (Version None)
Quarter: 2012Q3

REPORT INFORMATION
  Report Type: 
  Country: None (occurrence: None)
  Receive Date: 20120821
  Receipt Date: 20120821
  Transmission Date: 20120928
  Serious: Yes (Hospitalization)
  Sender: FDA-Public Use
  Company Number: None

PATIENT
  Age: 72 Year
  Sex: Male
  Weight: 75 kg

DRUGS (1)
  1. SULFAMETHOXAZOLE AND TRIMETHOPRIM [Suspect]
     Indication: SOFT TISSUE INFECTION
     Dosage: 1 TAB BID PO
     Route: 048
     Dates: start: 20120726, end: 20120802

REACTIONS (3)
  - PYREXIA [None]
  - TACHYCARDIA [None]
  - URTICARIA [None]
